FAERS Safety Report 11397104 (Version 1)
Quarter: 2015Q3

REPORT INFORMATION
  Report Type: Spontaneous
  Country: ES (occurrence: ES)
  Receive Date: 20150819
  Receipt Date: 20150819
  Transmission Date: 20151125
  Serious: Yes (Hospitalization, Other)
  Sender: FDA-Public Use
  Company Number: ES-JNJFOC-20150807306

PATIENT
  Age: 58 Year
  Sex: Male

DRUGS (1)
  1. GOLIMUMAB [Suspect]
     Active Substance: GOLIMUMAB
     Indication: PSORIATIC ARTHROPATHY
     Route: 058

REACTIONS (4)
  - Pyrexia [Unknown]
  - Whipple^s disease [Recovered/Resolved]
  - Septic shock [Unknown]
  - Cardiac failure [Unknown]
